FAERS Safety Report 6275443-4 (Version None)
Quarter: 2009Q3

REPORT INFORMATION
  Report Type: 
  Country: None (occurrence: None)
  Receive Date: 20090721
  Receipt Date: 20090713
  Transmission Date: 20100115
  Serious: No
  Sender: FDA-Public Use
  Company Number: US-JNJFOC-20090704713

PATIENT
  Sex: Male
  Weight: 93.44 kg

DRUGS (11)
  1. FENTANYL TRANSDERMAL SYSTEM [Suspect]
     Indication: ARTHRALGIA
     Route: 062
  2. FENTANYL TRANSDERMAL SYSTEM [Suspect]
     Indication: PAIN IN EXTREMITY
     Route: 062
  3. GABAPENTIN [Concomitant]
     Indication: MUSCLE SPASMS
     Route: 048
  4. GEMFIBROZIL [Concomitant]
     Indication: BLOOD CHOLESTEROL INCREASED
     Route: 048
  5. VALSARTAN [Concomitant]
     Indication: CARDIAC DISORDER
     Route: 048
  6. LOVASTATIN [Concomitant]
     Indication: BLOOD CHOLESTEROL INCREASED
     Dosage: 40 MG 2 TABLETS
     Route: 048
  7. CYMBALTA [Concomitant]
     Indication: DEPRESSION
     Route: 048
  8. TRAZODONE [Concomitant]
     Dosage: 300 MG IN THE EVENING
     Route: 048
  9. TRAZODONE [Concomitant]
     Indication: DEPRESSION
     Dosage: 300 MG ONE EVERY MORNING AND 600 MG ONE EVERY EVENING
     Route: 048
  10. CLONAZEPAM [Concomitant]
     Indication: SLEEP DISORDER
     Route: 048
  11. HYDROCODONE BITARTRATE + ACETAMINOPHEN [Concomitant]
     Indication: PAIN
     Dosage: 10/500 MG
     Route: 048

REACTIONS (6)
  - APPLICATION SITE EROSION [None]
  - APPLICATION SITE ERYTHEMA [None]
  - APPLICATION SITE REACTION [None]
  - DRUG ADMINISTERED AT INAPPROPRIATE SITE [None]
  - PRODUCT QUALITY ISSUE [None]
  - WRONG TECHNIQUE IN DRUG USAGE PROCESS [None]
